FAERS Safety Report 19958074 (Version 1)
Quarter: 2021Q4

REPORT INFORMATION
  Report Type: Spontaneous
  Country: GB (occurrence: GB)
  Receive Date: 20211015
  Receipt Date: 20211015
  Transmission Date: 20220303
  Serious: Yes (Disabling)
  Sender: FDA-Public Use
  Company Number: None

PATIENT
  Age: 42 Year
  Sex: Male
  Weight: 79 kg

DRUGS (2)
  1. PROTOPIC [Suspect]
     Active Substance: TACROLIMUS
     Indication: Suicidal ideation
     Dosage: TOPICAL - LIGHT APPLICATION
     Route: 061
     Dates: start: 20210321, end: 20210604
  2. PROTOPIC [Suspect]
     Active Substance: TACROLIMUS
     Indication: Suicidal ideation
     Dosage: TOPICAL - LIGHT APPLICATION
     Route: 061
     Dates: start: 20210321, end: 20210604

REACTIONS (3)
  - Pruritus [Recovered/Resolved]
  - Product use in unapproved indication [Unknown]
  - Eyelids pruritus [Recovered/Resolved]

NARRATIVE: CASE EVENT DATE: 20210601
